FAERS Safety Report 21581343 (Version 2)
Quarter: 2025Q2

REPORT INFORMATION
  Report Type: Spontaneous
  Country: US (occurrence: US)
  Receive Date: 20221111
  Receipt Date: 20250529
  Transmission Date: 20250716
  Serious: Yes (Other)
  Sender: QILU PHARMACEUTICAL (HAINAN) CO., LTD.
  Company Number: None

PATIENT
  Age: 57 Year
  Sex: Male

DRUGS (7)
  1. OXALIPLATIN [Suspect]
     Active Substance: OXALIPLATIN
     Indication: Oesophageal squamous cell carcinoma recurrent
     Route: 065
     Dates: end: 201701
  2. OXALIPLATIN [Suspect]
     Active Substance: OXALIPLATIN
     Indication: Oesophageal squamous cell carcinoma recurrent
  3. OXALIPLATIN [Suspect]
     Active Substance: OXALIPLATIN
     Indication: Oesophageal squamous cell carcinoma recurrent
  4. EPIRUBICIN [Suspect]
     Active Substance: EPIRUBICIN
     Indication: Oesophageal squamous cell carcinoma recurrent
     Route: 065
     Dates: end: 201701
  5. EPIRUBICIN [Suspect]
     Active Substance: EPIRUBICIN
     Indication: Oesophageal squamous cell carcinoma recurrent
  6. CAPECITABINE [Suspect]
     Active Substance: CAPECITABINE
     Indication: Oesophageal squamous cell carcinoma recurrent
     Route: 065
     Dates: end: 201701
  7. CAPECITABINE [Suspect]
     Active Substance: CAPECITABINE
     Indication: Oesophageal squamous cell carcinoma recurrent

REACTIONS (3)
  - Pancytopenia [Unknown]
  - Hypertransaminasaemia [Unknown]
  - Off label use [Recovered/Resolved]

NARRATIVE: CASE EVENT DATE: 20170101
